FAERS Safety Report 10947227 (Version 2)
Quarter: 2015Q2

REPORT INFORMATION
  Report Type: Spontaneous
  Country: US (occurrence: US)
  Receive Date: 20150321
  Receipt Date: 20150525
  Transmission Date: 20150821
  Serious: No
  Sender: FDA-Public Use
  Company Number: US-JNJFOC-20131018557

PATIENT

DRUGS (3)
  1. METHOTREXATE [Suspect]
     Active Substance: METHOTREXATE
     Indication: PSORIATIC ARTHROPATHY
     Dosage: 7.5 MG TO 15 MG EVERY WEEK
     Route: 065
  2. ANTI-TUMOR NECROSIS FACTOR MONOCLON. ANTIBODY [Suspect]
     Active Substance: UNSPECIFIED INGREDIENT
     Indication: PSORIATIC ARTHROPATHY
     Dosage: 7.5 MG TO 15 MG EVERY WEEK
     Route: 065
  3. USTEKINUMAB [Suspect]
     Active Substance: USTEKINUMAB
     Indication: PSORIATIC ARTHROPATHY
     Dosage: WEEK 0, 4 AND THEN EVERY 12 WEEKS
     Route: 058

REACTIONS (2)
  - Mucosal inflammation [Unknown]
  - Nausea [Unknown]
